FAERS Safety Report 5309960-8 (Version None)
Quarter: 2007Q2

REPORT INFORMATION
  Report Type: 
  Country: None (occurrence: None)
  Receive Date: 20070427
  Receipt Date: 20070417
  Transmission Date: 20071010
  Serious: Yes (Death)
  Sender: FDA-Public Use
  Company Number: IE-ELI_LILLY_AND_COMPANY-IE200704004061

PATIENT
  Age: 67 Year

DRUGS (1)
  1. FORTEO [Suspect]

REACTIONS (2)
  - ANKYLOSING SPONDYLITIS [None]
  - BRONCHIECTASIS [None]
